FAERS Safety Report 20746639 (Version 3)
Quarter: 2025Q1

REPORT INFORMATION
  Report Type: Spontaneous
  Country: US (occurrence: US)
  Receive Date: 20220425
  Receipt Date: 20250319
  Transmission Date: 20250409
  Serious: No
  Sender: MYLAN
  Company Number: US-MYLANLABS-2022M1027958

PATIENT
  Age: 54 Year
  Sex: Female
  Weight: 93.44 kg

DRUGS (7)
  1. FENTANYL TRANSDERMAL SYSTEM [Suspect]
     Active Substance: FENTANYL
     Indication: Pain
     Dosage: 50 MICROGRAM, QH (FOR 72 HOURS)START DATE: 04-APR-2022
     Dates: start: 2012, end: 20220411
  2. FENTANYL TRANSDERMAL SYSTEM [Suspect]
     Active Substance: FENTANYL
     Indication: Complex regional pain syndrome
     Dosage: 50 MICROGRAM, QH (FOR 72 HOURS), SECOND BOX
  3. FENTANYL TRANSDERMAL SYSTEM [Suspect]
     Active Substance: FENTANYL
     Indication: Neuropathy peripheral
  4. CYCLOBENZAPRINE [Concomitant]
     Active Substance: CYCLOBENZAPRINE
     Indication: Pain
     Dosage: 10 MILLIGRAM, TID (THREE TIMES A DAY)
  5. CYCLOBENZAPRINE [Concomitant]
     Active Substance: CYCLOBENZAPRINE
     Dosage: 5 MILLIGRAM, TID (THREE TIMES A DAY)
  6. OXYCODONE [Concomitant]
     Active Substance: OXYCODONE
     Indication: Pain
     Dosage: 15 MILLIGRAM, Q6H (EVERY 6 HOUR)
  7. OXYCODONE [Concomitant]
     Active Substance: OXYCODONE
     Dosage: 15 MILLIGRAM, QID (4 TIMES A DAY))

REACTIONS (11)
  - Pain [Unknown]
  - Burning sensation [Unknown]
  - Application site irritation [Unknown]
  - Application site erythema [Not Recovered/Not Resolved]
  - Application site papules [Not Recovered/Not Resolved]
  - Application site rash [Unknown]
  - Application site swelling [Unknown]
  - Application site pruritus [Recovered/Resolved]
  - Hypoaesthesia [Unknown]
  - Therapeutic product effect decreased [Unknown]
  - Product adhesion issue [Unknown]

NARRATIVE: CASE EVENT DATE: 20220328
